FAERS Safety Report 8442502 (Version 2)
Quarter: 2012Q4

REPORT INFORMATION
  Report Type: Report from Study
  Country: JP (occurrence: JP)
  Receive Date: 20120302
  Receipt Date: 20121218
  Transmission Date: 20130627
  Serious: Yes (Hospitalization)
  Sender: FDA-Public Use
  Company Number: JP-ROCHE-1039030

PATIENT
  Age: 54 Year
  Sex: Male
  Weight: 60 kg

DRUGS (9)
  1. PEG-INTERFERON ALFA 2A [Suspect]
     Indication: CHRONIC HEPATITIS C
     Dosage: form :spi
     Route: 058
     Dates: start: 20110810, end: 20120125
  2. PEG-INTERFERON ALFA 2A [Suspect]
     Dosage: form :spi. Therapy stopped on an unspecified date
     Route: 058
     Dates: start: 20120208
  3. RIBAVIRIN [Suspect]
     Indication: CHRONIC HEPATITIS C
     Route: 048
     Dates: start: 20110810, end: 20120125
  4. RIBAVIRIN [Suspect]
     Route: 048
     Dates: start: 20120208
  5. BLINDED BI 201335 [Suspect]
     Indication: CHRONIC HEPATITIS C
     Route: 048
     Dates: start: 20110810, end: 20120124
  6. NORVASC [Suspect]
     Indication: PRODUCT USED FOR UNKNOWN INDICATION
     Dosage: For HYPERPIESIA
     Route: 065
     Dates: start: 20110801
  7. TAKEPRON [Suspect]
     Indication: PRODUCT USED FOR UNKNOWN INDICATION
     Dosage: For gastric mucosa protection
     Route: 065
     Dates: start: 20110831
  8. PROMAC [Suspect]
     Indication: PRODUCT USED FOR UNKNOWN INDICATION
     Dosage: For gastric mucosa protection
     Route: 065
     Dates: start: 20110831
  9. OCTINOXATE [Concomitant]
     Route: 065
     Dates: start: 20110810

REACTIONS (4)
  - Diverticulitis [Recovered/Resolved]
  - Rash [Recovered/Resolved]
  - Abdominal pain upper [Recovered/Resolved]
  - Nasopharyngitis [Recovered/Resolved]
